FAERS Safety Report 10899366 (Version 1)
Quarter: 2015Q1

REPORT INFORMATION
  Report Type: Spontaneous
  Country: US (occurrence: US)
  Receive Date: 20150309
  Receipt Date: 20150309
  Transmission Date: 20150721
  Serious: Yes (Other)
  Sender: FDA-Public Use
  Company Number: US-BAYER-2015-030415

PATIENT
  Age: 82 Year
  Sex: Female
  Weight: 72.56 kg

DRUGS (8)
  1. VITAMIN D [Concomitant]
     Active Substance: CHOLECALCIFEROL
  2. CALTRATE [CALCIUM CARBONATE] [Concomitant]
  3. CLOZAPINE. [Concomitant]
     Active Substance: CLOZAPINE
  4. BAYER LOW DOSE [Suspect]
     Active Substance: ASPIRIN
     Indication: ISCHAEMIC HEART DISEASE PROPHYLAXIS
     Dosage: 1 DF, TIW
     Route: 048
  5. FISH OIL [Concomitant]
     Active Substance: FISH OIL
  6. TEMAZEPAM. [Concomitant]
     Active Substance: TEMAZEPAM
  7. PHILLIPS^ FIBER GOOD GUMMIES [Suspect]
     Active Substance: INULIN
     Dosage: 1 DF, THREE TO FOUR TIMES A DAY
     Route: 048
     Dates: start: 201502
  8. NORVASC [Concomitant]
     Active Substance: AMLODIPINE BESYLATE

REACTIONS (3)
  - Drug ineffective [Unknown]
  - Inappropriate schedule of drug administration [Unknown]
  - Epistaxis [Recovered/Resolved]

NARRATIVE: CASE EVENT DATE: 201502
